FAERS Safety Report 4955505-1 (Version None)
Quarter: 2006Q1

REPORT INFORMATION
  Report Type: 
  Country: None (occurrence: None)
  Receive Date: 20060127
  Receipt Date: 20050620
  Transmission Date: 20060701
  Serious: Yes (Hospitalization, Other)
  Sender: FDA-Public Use
  Company Number: 05-06-1078

PATIENT
  Age: 28 Year
  Sex: Male
  Weight: 85.2762 kg

DRUGS (3)
  1. CLOZAPINE [Suspect]
     Indication: SCHIZOPHRENIA
     Dosage: 175MG QD, ORAL
     Route: 048
     Dates: start: 20010101, end: 20050101
  2. LAMICTAL [Concomitant]
  3. CITALOPRAM (CITALOPRAM) [Concomitant]

REACTIONS (2)
  - DIABETES MELLITUS INADEQUATE CONTROL [None]
  - PSYCHOTIC DISORDER [None]
